FAERS Safety Report 8737959 (Version 2)
Quarter: 2013Q4

REPORT INFORMATION
  Report Type: Spontaneous
  Country: US (occurrence: US)
  Receive Date: 20120823
  Receipt Date: 20131101
  Transmission Date: 20140711
  Serious: No
  Sender: FDA-Public Use
  Company Number: US-009507513-1207USA011616

PATIENT
  Sex: Male

DRUGS (10)
  1. VICTRELIS [Suspect]
     Indication: HEPATITIS C
     Dosage: 800 MG DAILY
     Route: 048
     Dates: start: 201205
  2. PEGASYS [Suspect]
     Dosage: 180 MG, QW
     Route: 058
  3. RIBASPHERE [Suspect]
     Dosage: 200 MG 3 TABLETS TWICE A DAY
  4. NEUPOGEN [Concomitant]
     Dosage: 300 MG, QW
     Route: 058
  5. LISINOPRIL [Concomitant]
     Dosage: 10 MG, QD
  6. METOPROLOL [Concomitant]
     Dosage: 25 MG, BID
  7. VITAMINS (UNSPECIFIED) [Concomitant]
     Dosage: 1 DF, QD
  8. ASCORBIC ACID [Concomitant]
     Dosage: 500 MG, QD
  9. VITAMIN D (UNSPECIFIED) [Concomitant]
     Dosage: 1000 UNIT, QD
  10. IBUPROFEN [Concomitant]
     Dosage: UNK, PRN

REACTIONS (3)
  - Influenza like illness [Not Recovered/Not Resolved]
  - Fatigue [Not Recovered/Not Resolved]
  - Diarrhoea [Not Recovered/Not Resolved]
